FAERS Safety Report 5245176-1 (Version None)
Quarter: 2007Q1

REPORT INFORMATION
  Report Type: 
  Country: None (occurrence: None)
  Receive Date: 20070223
  Receipt Date: 20070125
  Transmission Date: 20070707
  Serious: Yes (Disabling)
  Sender: FDA-Public Use
  Company Number: FR-ROCHE-480120

PATIENT
  Age: 94 Year
  Sex: Female
  Weight: 42 kg

DRUGS (16)
  1. XELODA [Suspect]
     Route: 048
     Dates: start: 20061113
  2. DURAGESIC-100 [Concomitant]
  3. ACTISKENAN [Concomitant]
  4. CORTANCYL [Concomitant]
  5. ARIXTRA [Concomitant]
  6. DIGOXIN [Concomitant]
  7. CELECTOL [Concomitant]
     Dosage: CELCETOL 200
  8. INIPOMP [Concomitant]
     Dosage: INIPOMP 40
  9. LASIX [Concomitant]
  10. FOSAMAX [Concomitant]
  11. TRIATEC [Concomitant]
  12. PRIMPERAN [Concomitant]
  13. ACETAMINOPHEN [Concomitant]
     Dosage: 6 DOSES PER DAY
  14. RIVOTRIL [Concomitant]
  15. LOVENOX [Concomitant]
  16. COUMADIN [Concomitant]

REACTIONS (2)
  - AREFLEXIA [None]
  - NEUROPATHY PERIPHERAL [None]
